FAERS Safety Report 17994052 (Version 21)
Quarter: 2025Q2

REPORT INFORMATION
  Report Type: Spontaneous
  Country: US (occurrence: US)
  Receive Date: 20200708
  Receipt Date: 20250520
  Transmission Date: 20250716
  Serious: Yes (Hospitalization, Other)
  Sender: TEVA
  Company Number: US-TEVA-2020-US-1798630

PATIENT
  Age: 71 Year
  Sex: Female
  Weight: 104.3 kg

DRUGS (36)
  1. HYDROCHLOROTHIAZIDE\VALSARTAN [Suspect]
     Active Substance: HYDROCHLOROTHIAZIDE\VALSARTAN
     Indication: Hypertension
     Dosage: DOSAGE TEXT: DOSAGE: 320-12.5 MG
     Route: 048
     Dates: start: 20141020, end: 20180403
  2. HYDROCHLOROTHIAZIDE\VALSARTAN [Suspect]
     Active Substance: HYDROCHLOROTHIAZIDE\VALSARTAN
     Indication: Hypertension
     Route: 048
     Dates: start: 20130617, end: 20140615
  3. LISINOPRIL [Concomitant]
     Active Substance: LISINOPRIL
     Indication: Hypertension
     Dosage: DOSAGE TEXT: 20MG; ONCE A DAY
     Route: 048
     Dates: start: 20190228
  4. ATORVASTATIN [Concomitant]
     Active Substance: ATORVASTATIN
     Indication: Hyperlipidaemia
     Dosage: DOSAGE TEXT: ONCE A DAY
     Route: 048
     Dates: start: 201209, end: 201407
  5. METOPROLOL [Concomitant]
     Active Substance: METOPROLOL
     Indication: Product used for unknown indication
     Dosage: SUSTAINED ACTION
     Route: 050
  6. TEMAZEPAM [Concomitant]
     Active Substance: TEMAZEPAM
     Indication: Product used for unknown indication
     Dosage: EVERY NIGHT AT BEDTIME
     Route: 048
  7. MACROBID [Concomitant]
     Active Substance: NITROFURANTOIN\NITROFURANTOIN MONOHYDRATE
     Indication: Product used for unknown indication
     Route: 048
  8. INFLUENZA VIRUS VACCINE [Concomitant]
     Active Substance: INFLUENZA VIRUS VACCINE
     Indication: Product used for unknown indication
     Route: 065
     Dates: start: 2015
  9. INFLUENZA VIRUS VACCINE [Concomitant]
     Active Substance: INFLUENZA VIRUS VACCINE
     Indication: Product used for unknown indication
     Route: 065
     Dates: start: 2016
  10. INFLUENZA VIRUS VACCINE [Concomitant]
     Active Substance: INFLUENZA VIRUS VACCINE
     Indication: Product used for unknown indication
     Route: 065
     Dates: start: 2017
  11. INFLUENZA VIRUS VACCINE [Concomitant]
     Active Substance: INFLUENZA VIRUS VACCINE
     Indication: Product used for unknown indication
     Route: 065
     Dates: start: 2018
  12. INFLUENZA VIRUS VACCINE [Concomitant]
     Active Substance: INFLUENZA VIRUS VACCINE
     Indication: Product used for unknown indication
     Route: 065
     Dates: start: 2020
  13. ONDANSETRON HYDROCHLORIDE [Concomitant]
     Active Substance: ONDANSETRON HYDROCHLORIDE
     Indication: Product used for unknown indication
     Route: 048
  14. BACTRIM DS [Concomitant]
     Active Substance: SULFAMETHOXAZOLE\TRIMETHOPRIM
     Indication: Product used for unknown indication
     Route: 048
  15. LORAZEPAM [Concomitant]
     Active Substance: LORAZEPAM
     Indication: Product used for unknown indication
     Route: 048
  16. PREDNISONE [Concomitant]
     Active Substance: PREDNISONE
     Indication: Product used for unknown indication
     Dosage: TO BE TAKEN ON DAYS 1-5
     Route: 048
  17. SILVADENE [Concomitant]
     Active Substance: SILVER SULFADIAZINE
     Indication: Product used for unknown indication
     Route: 061
  18. ANTARA [Concomitant]
     Active Substance: FENOFIBRATE
     Indication: Hyperlipidaemia
     Dosage: DOSAGE TEXT: 1 CAPSULE DAILY
     Route: 048
     Dates: start: 201105, end: 201209
  19. BLACK COHOSH [Concomitant]
     Active Substance: BLACK COHOSH
     Indication: Product used for unknown indication
     Dosage: DOSAGE TEXT: 1 CAPSULE TWICE DAILY
     Route: 048
  20. FOLIC ACID [Concomitant]
     Active Substance: FOLIC ACID
     Indication: Product used for unknown indication
     Route: 048
  21. VITAMIN D3 [Concomitant]
     Active Substance: CHOLECALCIFEROL
     Indication: Product used for unknown indication
     Dosage: DOSAGE TEXT: EVERY OTHER DAY
     Route: 048
     Dates: start: 20140325
  22. VITAMIN D3 [Concomitant]
     Active Substance: CHOLECALCIFEROL
     Indication: Product used for unknown indication
     Route: 048
  23. VITAMIN B12 [Concomitant]
     Active Substance: CYANOCOBALAMIN
     Indication: Product used for unknown indication
     Route: 065
  24. DIOVAN [Concomitant]
     Active Substance: VALSARTAN
     Indication: Hypertension
     Route: 048
     Dates: start: 2010, end: 2013
  25. METFORMIN HYDROCHLORIDE [Concomitant]
     Active Substance: METFORMIN HYDROCHLORIDE
     Indication: Diabetes mellitus
     Dosage: DOSAGE TEXT: ONGOING
     Route: 048
     Dates: start: 2009
  26. ASPIRIN [Concomitant]
     Active Substance: ASPIRIN
     Indication: Product used for unknown indication
     Route: 048
  27. CYANOCOBALAMIN [Concomitant]
     Active Substance: CYANOCOBALAMIN
     Indication: Product used for unknown indication
     Route: 048
  28. LIRAGLUTIDE [Concomitant]
     Active Substance: LIRAGLUTIDE
     Indication: Product used for unknown indication
     Route: 058
  29. LEVOFLOXACIN [Concomitant]
     Active Substance: LEVOFLOXACIN
     Indication: Product used for unknown indication
     Route: 048
  30. ZALEPLON [Concomitant]
     Active Substance: ZALEPLON
     Indication: Product used for unknown indication
     Route: 048
  31. NAPROXEN [Concomitant]
     Active Substance: NAPROXEN
     Indication: Product used for unknown indication
     Route: 048
  32. NAPROXEN [Concomitant]
     Active Substance: NAPROXEN
     Indication: Product used for unknown indication
     Route: 048
  33. PHENAZOPYRIDINE [Concomitant]
     Active Substance: PHENAZOPYRIDINE
     Indication: Urinary tract pain
     Route: 048
  34. GLIPIZIDE [Concomitant]
     Active Substance: GLIPIZIDE
     Indication: Product used for unknown indication
     Route: 048
  35. ASPIRIN [Concomitant]
     Active Substance: ASPIRIN
     Indication: Product used for unknown indication
     Route: 048
     Dates: end: 20220824
  36. VICTOZA [Concomitant]
     Active Substance: LIRAGLUTIDE
     Indication: Product used for unknown indication
     Route: 048

REACTIONS (3)
  - Diffuse large B-cell lymphoma stage I [Recovered/Resolved]
  - Breast cancer female [Recovered/Resolved]
  - Malignant melanoma [Recovered/Resolved]
